FAERS Safety Report 9597628 (Version 1)
Quarter: 2013Q4

REPORT INFORMATION
  Report Type: Spontaneous
  Country: US (occurrence: US)
  Receive Date: 20131004
  Receipt Date: 20131004
  Transmission Date: 20140711
  Serious: No
  Sender: FDA-Public Use
  Company Number: US-AMGEN-USASP2013019992

PATIENT
  Age: 64 Year
  Sex: Female
  Weight: 72 kg

DRUGS (14)
  1. ENBREL [Suspect]
     Indication: PRODUCT USED FOR UNKNOWN INDICATION
     Dosage: 50 MG, QWK
     Route: 058
  2. KLONOPIN [Concomitant]
     Dosage: 0.5 MG, UNK
  3. EFFEXOR [Concomitant]
     Dosage: 25 MG, UNK
  4. SONATA                             /00061001/ [Concomitant]
     Dosage: 25 MG, UNK
  5. METHOTREXATE [Concomitant]
     Dosage: 2.5 MG, UNK
  6. CELEXA                             /00582602/ [Concomitant]
     Dosage: 10 MG, UNK
  7. NORTRIPTYLIN [Concomitant]
     Dosage: 10 MG, UNK
  8. L-LYSINE                           /00919901/ [Concomitant]
     Dosage: 500 MG, UNK
  9. COQ [Concomitant]
     Dosage: 10 UNK, UNK
  10. OXYCODONE [Concomitant]
     Dosage: 20 MG, UNK
  11. MULTIVITAMINS, PLAIN [Concomitant]
     Dosage: UNK
  12. VITAMIN C                          /00008001/ [Concomitant]
     Dosage: 100 MG, UNK
  13. BIOTIN [Concomitant]
     Dosage: 5 MG, UNK
  14. LEUCOVORIN                         /00566701/ [Concomitant]
     Dosage: 5 MG, UNK

REACTIONS (2)
  - Injection site haemorrhage [Unknown]
  - Injection site bruising [Unknown]
